FAERS Safety Report 11315846 (Version 2)
Quarter: 2015Q3

REPORT INFORMATION
  Report Type: Spontaneous
  Country: US (occurrence: None)
  Receive Date: 20150724
  Receipt Date: 20150806
  Transmission Date: 20151125
  Serious: Yes (Other)
  Sender: FDA-Public Use
  Company Number: 2015SMT00197

PATIENT
  Age: 51 Year
  Sex: Male
  Weight: 147.4 kg

DRUGS (3)
  1. UNSPECIFIED BLOOD PRESSURE MEDICATION(S) (UNSPECIFIED BLOOD PRESSURE MEDICATION(S)) [Concomitant]
  2. UNSPECIFIED DIABETES MEDICATION(S) (UNSPECIFIED DIABETES MEDICATION(S)) [Concomitant]
  3. REGRANEX [Suspect]
     Active Substance: BECAPLERMIN
     Indication: WOUND
     Dosage: 1 DOSAGE UNITS, UNK, TOPICAL
     Route: 061
     Dates: start: 201503, end: 2015

REACTIONS (3)
  - Cellulitis [None]
  - Application site infection [None]
  - Osteomyelitis [None]

NARRATIVE: CASE EVENT DATE: 201505
